FAERS Safety Report 6507857-9 (Version None)
Quarter: 2009Q4

REPORT INFORMATION
  Report Type: 
  Country: None (occurrence: None)
  Receive Date: 20091221
  Receipt Date: 20091214
  Transmission Date: 20100525
  Serious: Yes (Hospitalization)
  Sender: FDA-Public Use
  Company Number: A0834981A

PATIENT
  Age: 75 Year
  Sex: Male

DRUGS (8)
  1. ALKERAN [Suspect]
     Dosage: 6MG PER DAY
     Route: 048
     Dates: start: 20090916, end: 20091005
  2. PREDNISONE [Concomitant]
  3. FLUDROCORTISONE [Concomitant]
  4. MAGNESIUM [Concomitant]
  5. POTASSIUM [Concomitant]
  6. PAXIL [Concomitant]
  7. ACYCLOVIR [Concomitant]
  8. CIPRO [Concomitant]

REACTIONS (6)
  - BONE MARROW FAILURE [None]
  - DECREASED APPETITE [None]
  - FATIGUE [None]
  - INCREASED UPPER AIRWAY SECRETION [None]
  - IRON OVERLOAD [None]
  - WHITE BLOOD CELL COUNT DECREASED [None]
